FAERS Safety Report 9235333 (Version 1)
Quarter: 2013Q2

REPORT INFORMATION
  Report Type: Spontaneous
  Country: US (occurrence: US)
  Receive Date: 20130417
  Receipt Date: 20130417
  Transmission Date: 20140414
  Serious: No
  Sender: FDA-Public Use
  Company Number: US-009507513-1304USA006487

PATIENT
  Age: 56 Year
  Sex: Female

DRUGS (3)
  1. VICTRELIS [Suspect]
     Dosage: UNK
     Route: 048
     Dates: start: 20130405
  2. REBETOL [Suspect]
     Route: 048
  3. PEGINTRON [Suspect]

REACTIONS (8)
  - Pain in extremity [Not Recovered/Not Resolved]
  - Chills [Not Recovered/Not Resolved]
  - Dizziness [Not Recovered/Not Resolved]
  - Nausea [Not Recovered/Not Resolved]
  - Dysgeusia [Not Recovered/Not Resolved]
  - Capsule physical issue [Unknown]
  - Product container issue [Unknown]
  - Accidental exposure to product [Unknown]
